FAERS Safety Report 4663897-6 (Version None)
Quarter: 2005Q2

REPORT INFORMATION
  Report Type: 
  Country: None (occurrence: None)
  Receive Date: 20050511
  Receipt Date: 20050119
  Transmission Date: 20051028
  Serious: Yes (Other)
  Sender: FDA-Public Use
  Company Number: 376757

PATIENT
  Age: 38 Year
  Sex: Female

DRUGS (8)
  1. PEGASYS [Suspect]
     Indication: HEPATITIS C
     Dosage: 180 MCG 1 PER WEEK
     Dates: start: 20040621
  2. COPEGUS [Suspect]
     Indication: HEPATITIS C
     Dates: start: 20040621, end: 20040717
  3. CIMETIDINE [Concomitant]
  4. FURSEMIDE (FUROSEMIDE) [Concomitant]
  5. NADOLOL [Concomitant]
  6. HYDROXYZINE [Concomitant]
  7. HYDROCODONE BITARTRATE [Concomitant]
  8. ENULOSE [Concomitant]

REACTIONS (16)
  - ANAEMIA [None]
  - CONFUSIONAL STATE [None]
  - CRYING [None]
  - DEPRESSION [None]
  - DYSPNOEA [None]
  - DYSPNOEA EXERTIONAL [None]
  - FATIGUE [None]
  - GINGIVAL BLEEDING [None]
  - HYPERSOMNIA [None]
  - HYPOTRICHOSIS [None]
  - INFLUENZA LIKE ILLNESS [None]
  - MEMORY IMPAIRMENT [None]
  - MOOD SWINGS [None]
  - MUSCULOSKELETAL PAIN [None]
  - PLATELET COUNT DECREASED [None]
  - WHITE BLOOD CELL COUNT DECREASED [None]
